FAERS Safety Report 16100280 (Version 1)
Quarter: 2019Q1

REPORT INFORMATION
  Report Type: Spontaneous
  Country: FR (occurrence: FR)
  Receive Date: 20190321
  Receipt Date: 20190321
  Transmission Date: 20190418
  Serious: Yes (Death, Other)
  Sender: FDA-Public Use
  Company Number: FR-TAKEDA-2019TUS014033

PATIENT
  Age: 72 Year
  Sex: Male
  Weight: 77 kg

DRUGS (1)
  1. NINLARO [Suspect]
     Active Substance: IXAZOMIB CITRATE
     Indication: PLASMA CELL MYELOMA
     Dosage: 3 MILLIGRAM, QD
     Route: 048
     Dates: start: 20181122, end: 20181203

REACTIONS (1)
  - Thrombotic microangiopathy [Fatal]

NARRATIVE: CASE EVENT DATE: 20181203
